FAERS Safety Report 8321097-2 (Version None)
Quarter: 2012Q2

REPORT INFORMATION
  Report Type: 
  Country: None (occurrence: None)
  Receive Date: 20120430
  Receipt Date: 20120423
  Transmission Date: 20120825
  Serious: Yes (Other)
  Sender: FDA-Public Use
  Company Number: US-JNJFOC-20120413229

PATIENT
  Sex: Male

DRUGS (2)
  1. ROGAINE (FOR MEN) [Suspect]
     Indication: ALOPECIA
     Route: 061
  2. ROGAINE (FOR MEN) [Suspect]
     Route: 061

REACTIONS (3)
  - APPLICATION SITE EXFOLIATION [None]
  - SKIN INFECTION [None]
  - APPLICATION SITE PRURITUS [None]
